FAERS Safety Report 6034647-6 (Version None)
Quarter: 2009Q1

REPORT INFORMATION
  Report Type: 
  Country: None (occurrence: None)
  Receive Date: 20090109
  Receipt Date: 20090109
  Transmission Date: 20090719
  Serious: Yes (Disabling)
  Sender: FDA-Public Use
  Company Number: None

PATIENT
  Sex: Female

DRUGS (8)
  1. ZOMETA [Suspect]
     Indication: BREAST CANCER
     Dosage: 4 MG WEEKLY IV
     Route: 042
     Dates: start: 20020701, end: 20070201
  2. CHEMOTHERAPY [Concomitant]
  3. RADIOTHERAPY TO RIGHT HIP [Concomitant]
  4. COREG [Concomitant]
  5. DIOVAN [Concomitant]
  6. ASPIRIN [Concomitant]
  7. PENICILLIN G POTASSIUM FOR ORAL SOLUTION [Concomitant]
  8. PERIDEX [Concomitant]

REACTIONS (4)
  - BONE DISORDER [None]
  - EXCESSIVE GRANULATION TISSUE [None]
  - FISTULA [None]
  - ORAL DISORDER [None]
